FAERS Safety Report 10050997 (Version 1)
Quarter: 2014Q1

REPORT INFORMATION
  Report Type: Spontaneous
  Country: US (occurrence: None)
  Receive Date: 20140328
  Receipt Date: 20140328
  Transmission Date: 20141002
  Serious: Yes (Other)
  Sender: FDA-Public Use
  Company Number: AUR-APL-2014-03868

PATIENT
  Age: 59 Year
  Sex: Male
  Weight: 81.63 kg

DRUGS (23)
  1. ATENOLOL (ATENOLOL) [Suspect]
     Indication: PRODUCT USED FOR UNKNOWN INDICATION
     Dosage: 1 D
     Route: 048
     Dates: start: 201309
  2. LISINOPRIL (LISINOPRIL) [Suspect]
     Indication: PRODUCT USED FOR UNKNOWN INDICATION
     Dosage: 1 D
     Route: 048
     Dates: start: 2012
  3. NEXIUM (ESOMEPRAZOLE MAGNESIUM) [Suspect]
     Indication: GASTROOESOPHAGEAL REFLUX DISEASE
     Dosage: 1 D
     Route: 048
     Dates: start: 2003, end: 200402
  4. CRESTOR (ROSUVASTATIN CALCIUM) [Suspect]
     Indication: CORONARY ARTERY DISEASE
     Dosage: 1 D
     Route: 048
     Dates: start: 2009
  5. FISH OIL (FISH OIL) [Concomitant]
  6. ACETYLSALICYLIC ACID (ACETYLSALICYLIC ACID) [Concomitant]
  7. HYDROCHLOROTHIAZID (HYDROCHLOROTHIAZIDE) [Concomitant]
  8. AMBIEN (ZOLPIDEM TARTRATE) [Concomitant]
  9. SOMA (CARISOPRODOL) [Concomitant]
  10. TIZANIDINE [Concomitant]
  11. ADVAIR DISKUS [Concomitant]
  12. PROAIR (SALBUTAMOL SULFATE) [Concomitant]
  13. FLONASE (FLUTICASONE PROPIONATE) [Concomitant]
  14. SPIRIVA (TIOTROPIUM BROMIDE) [Concomitant]
  15. PERCOCET (TYLOX /00446701/) [Concomitant]
  16. NYSTATIN [Concomitant]
  17. HYDROGEN PEROXIDE (HYDROGEN PEROXIDE) [Concomitant]
  18. KETOCONAZOLE [Concomitant]
  19. NITROGLYCERIN (GLYCERYL TRINITRATE) [Concomitant]
  20. LIDODERM (LIDOCAINE) [Concomitant]
  21. VOLTAREN (DICLOFENAC) [Concomitant]
  22. CAPSAICIN [Concomitant]
  23. LIDOCAINE [Concomitant]

REACTIONS (16)
  - Joint injury [None]
  - Fall [None]
  - Skin papilloma [None]
  - Fungal infection [None]
  - Aphagia [None]
  - Weight decreased [None]
  - Abdominal pain upper [None]
  - Erythema [None]
  - Coronary artery disease [None]
  - Sleep apnoea syndrome [None]
  - Chronic obstructive pulmonary disease [None]
  - Decreased appetite [None]
  - Gait disturbance [None]
  - Blood cholesterol increased [None]
  - Musculoskeletal discomfort [None]
  - Musculoskeletal stiffness [None]
